FAERS Safety Report 6756954-1 (Version None)
Quarter: 2010Q2

REPORT INFORMATION
  Report Type: 
  Country: None (occurrence: None)
  Receive Date: 20100603
  Receipt Date: 20100603
  Transmission Date: 20101027
  Serious: Yes (Hospitalization)
  Sender: FDA-Public Use
  Company Number: None

PATIENT
  Age: 45 Year
  Sex: Male
  Weight: 97.68 kg

DRUGS (1)
  1. DOBUTAMINE HCL [Suspect]
     Dates: start: 20100129, end: 20100129

REACTIONS (3)
  - PALPITATIONS [None]
  - POST PROCEDURAL COMPLICATION [None]
  - SINUS ARREST [None]
